FAERS Safety Report 10242204 (Version 1)
Quarter: 2014Q2

REPORT INFORMATION
  Report Type: Report from Study
  Country: US (occurrence: US)
  Receive Date: 20140617
  Receipt Date: 20140617
  Transmission Date: 20141212
  Serious: Yes (Other)
  Sender: FDA-Public Use
  Company Number: US-BAYER-2014-088168

PATIENT
  Age: 77 Year
  Sex: Male

DRUGS (4)
  1. RIVAROXABAN [Suspect]
     Indication: ANTICOAGULANT THERAPY
     Dosage: 20 MG DAILY
     Route: 048
  2. RIVAROXABAN [Interacting]
     Indication: ATRIAL FIBRILLATION
  3. RIVAROXABAN [Interacting]
     Indication: CEREBROVASCULAR ACCIDENT PROPHYLAXIS
  4. ACETYLSALICYLIC ACID({=100 MG) [Interacting]
     Dosage: 81 MG DAILY
     Route: 048

REACTIONS (2)
  - Subdural haemorrhage [None]
  - Drug interaction [None]
